FAERS Safety Report 17931824 (Version 3)
Quarter: 2020Q3

REPORT INFORMATION
  Report Type: Report from Study
  Country: US (occurrence: US)
  Receive Date: 20200624
  Receipt Date: 20200707
  Transmission Date: 20201103
  Serious: Yes (Hospitalization, Other)
  Sender: FDA-Public Use
  Company Number: US-BRISTOL-MYERS SQUIBB COMPANY-BMS-2020-049095

PATIENT
  Age: 48 Year
  Sex: Female
  Weight: 78 kg

DRUGS (22)
  1. ZYRTEC [Concomitant]
     Active Substance: CETIRIZINE HYDROCHLORIDE
     Indication: HYPERSENSITIVITY
     Dosage: 1 TAB, AS NEEDED
     Route: 048
  2. ROBITUSSIN A C [Concomitant]
     Active Substance: CODEINE\GUAIFENESIN\PHENIRAMINE MALEATE
     Indication: COUGH
     Dosage: 10?100 MG/5ML, TAKE 5 ML BY MOUTH 3 TIMES A DAY AS NEEDED
     Route: 048
     Dates: start: 20200325
  3. CODEINE [Concomitant]
     Active Substance: CODEINE
     Indication: COUGH
     Dosage: TAKE 1?2 TABS (15?30 MG TOTAL), EVERY 6 HOURS AS NEEDED
     Route: 048
     Dates: start: 20200323
  4. COLACE [Concomitant]
     Active Substance: DOCUSATE SODIUM
     Indication: FAECES SOFT
     Dosage: 200 MILLIGRAM, BID
     Route: 048
     Dates: start: 20200513
  5. NOVOLOG [Concomitant]
     Active Substance: INSULIN ASPART
     Indication: DIABETES MELLITUS
     Dosage: INJECT SQ 25 UNITS BEFORE BREAKFAST 15 UNITS BEFORE DINNER
     Route: 058
     Dates: start: 20191204
  6. IPILIMUMAB [Suspect]
     Active Substance: IPILIMUMAB
     Indication: LEIOMYOSARCOMA
     Dosage: 79 MILLIGRAM, Q3WK
     Route: 042
     Dates: start: 20200210, end: 20200415
  7. PRAVACHOL [Concomitant]
     Active Substance: PRAVASTATIN SODIUM
     Indication: BLOOD CHOLESTEROL
     Dosage: 20 MG BY MOUTH DAILY AT NIGHT
     Route: 048
  8. NIVOLUMAB [Suspect]
     Active Substance: NIVOLUMAB
     Dosage: 480 MILLIGRAM, Q3WK
     Route: 042
     Dates: start: 20200610
  9. SYNTHROID [Concomitant]
     Active Substance: LEVOTHYROXINE SODIUM
     Indication: THYROID DISORDER
     Dosage: 75 MCG TOTAL BY MOUTH EVERY MORNING BEFORE BREAKFAST
     Route: 048
     Dates: start: 20200612
  10. COMPAZINE [Concomitant]
     Active Substance: PROCHLORPERAZINE MALEATE
     Indication: VOMITING
     Dosage: TAKE 1 TAB (10 MG TOTAL) BY MOUTH EVERY 6 HOURS AS NEEDED
     Route: 048
     Dates: start: 20200513
  11. INSULIN [Concomitant]
     Active Substance: INSULIN NOS
     Indication: PRODUCT USED FOR UNKNOWN INDICATION
     Dosage: TO INJECT INSULIN TWICE A DAY, SYRINGE
     Route: 065
     Dates: start: 20191204
  12. NIVOLUMAB [Suspect]
     Active Substance: NIVOLUMAB
     Indication: LEIOMYOSARCOMA
     Dosage: 237 MILLIGRAM, Q3WK
     Route: 042
     Dates: start: 20200210
  13. ARISTOCORT [TRIAMCINOLONE] [Concomitant]
     Indication: PRODUCT USED FOR UNKNOWN INDICATION
     Dosage: APPLY CREAM THIN FILM TO AFFECTED AREA 2 TIMES A DAY AS NEEDED
     Route: 065
     Dates: start: 20200415
  14. EMLA [Concomitant]
     Active Substance: LIDOCAINE\PRILOCAINE
     Indication: PAIN
     Dosage: 2.5?2.5 PERCENT CREAM AS NEEDED, APPLY OVER PORT AREA 30 MINUTES PRIOR TO PORT ACCESS
     Route: 061
     Dates: start: 20200304
  15. CIPRO [Concomitant]
     Active Substance: CIPROFLOXACIN HYDROCHLORIDE
     Indication: PRODUCT USED FOR UNKNOWN INDICATION
     Dosage: 1 TAB, BID
     Route: 048
  16. NEURONTIN [Concomitant]
     Active Substance: GABAPENTIN
     Indication: PAIN
     Dosage: 300 MILLIGRAM, BID
     Route: 048
     Dates: start: 20200415
  17. GLUCOTROL [Concomitant]
     Active Substance: GLIPIZIDE
     Indication: DIABETES MELLITUS
     Dosage: 10 MILLIGRAM, BID
     Route: 048
  18. LOPRESSOR [Concomitant]
     Active Substance: METOPROLOL TARTRATE
     Indication: BLOOD PRESSURE MEASUREMENT
     Dosage: 25 MILLIGRAM, QD
     Route: 048
     Dates: start: 20200304
  19. XARELTO [Concomitant]
     Active Substance: RIVAROXABAN
     Indication: THROMBOSIS PROPHYLAXIS
     Dosage: 20 MG BY MOUTH EVERY DAY TO START AFTER THE STARTER PACK
     Route: 048
     Dates: start: 20200413
  20. GLUCOPHAGE [Concomitant]
     Active Substance: METFORMIN HYDROCHLORIDE
     Indication: DIABETES MELLITUS
     Dosage: 1 TAB, BID
     Route: 048
     Dates: start: 20191017
  21. LOPRESSOR [Concomitant]
     Active Substance: METOPROLOL TARTRATE
     Indication: HEART RATE
  22. SENNA [SENNA ALEXANDRINA] [Concomitant]
     Active Substance: SENNA LEAF
     Indication: CONSTIPATION
     Dosage: TAKE 2 TABS (17.2 MG TOTAL) BY MOUTH EVERY BEDTIME AS NEEDED
     Route: 048
     Dates: start: 20200513

REACTIONS (6)
  - Hemiparesis [Unknown]
  - Vomiting [Unknown]
  - Dehydration [Recovered/Resolved]
  - Abdominal pain lower [Unknown]
  - Hypophysitis [Unknown]
  - Hypothyroidism [Unknown]

NARRATIVE: CASE EVENT DATE: 20200617
